FAERS Safety Report 5913229-8 (Version None)
Quarter: 2008Q4

REPORT INFORMATION
  Report Type: 
  Country: None (occurrence: None)
  Receive Date: 20081009
  Receipt Date: 20081007
  Transmission Date: 20090506
  Serious: Yes (Hospitalization)
  Sender: FDA-Public Use
  Company Number: GB-BAYER-200811375BNE

PATIENT
  Age: 38 Year
  Sex: Male
  Weight: 57 kg

DRUGS (7)
  1. SORAFENIB [Suspect]
     Indication: DRUG USE FOR UNKNOWN INDICATION
     Dates: start: 20071107
  2. SORAFENIB [Suspect]
     Dosage: AS USED: 400 MG
     Dates: start: 20071213
  3. SORAFENIB [Suspect]
     Dosage: TOTAL DAILY DOSE: 400 MG
     Dates: start: 20080604
  4. SORAFENIB [Suspect]
     Dosage: TOTAL DAILY DOSE: 600 MG
     Dates: start: 20080422, end: 20080524
  5. LEVOTHYROXINE SODIUM [Concomitant]
     Indication: THYROID HORMONE REPLACEMENT THERAPY
     Dosage: TOTAL DAILY DOSE: 175 ?G
     Route: 048
  6. ALFACALCIDOL [Concomitant]
     Indication: MINERAL SUPPLEMENTATION
     Dosage: TOTAL DAILY DOSE: 3 ?G
     Route: 048
  7. LANSOPRAZOLE [Concomitant]
     Indication: GASTRITIS
     Dosage: TOTAL DAILY DOSE: 30 MG
     Route: 048

REACTIONS (4)
  - ABDOMINAL PAIN LOWER [None]
  - C-REACTIVE PROTEIN INCREASED [None]
  - COLITIS [None]
  - PYREXIA [None]
